FAERS Safety Report 10871449 (Version 2)
Quarter: 2015Q1

REPORT INFORMATION
  Report Type: Spontaneous
  Country: IT (occurrence: IT)
  Receive Date: 20150226
  Receipt Date: 20150303
  Transmission Date: 20150721
  Serious: Yes (Other)
  Sender: FDA-Public Use
  Company Number: IT-SA-2015SA021596

PATIENT
  Age: 68 Year
  Sex: Female

DRUGS (7)
  1. CONGESCOR [Concomitant]
     Active Substance: BISOPROLOL
     Route: 048
  2. AMARYL [Suspect]
     Active Substance: GLIMEPIRIDE
     Indication: DIABETES MELLITUS
     Route: 048
     Dates: start: 20140101, end: 20141008
  3. GLUCOBAY [Suspect]
     Active Substance: ACARBOSE
     Indication: DIABETES MELLITUS
     Route: 048
     Dates: start: 20140101, end: 20141008
  4. INSULIN HUMAN REGULAR [Suspect]
     Active Substance: INSULIN HUMAN
     Indication: DIABETES MELLITUS
     Route: 058
     Dates: start: 20140101, end: 20141008
  5. METFORMIN [Suspect]
     Active Substance: METFORMIN HYDROCHLORIDE
     Indication: DIABETES MELLITUS
     Route: 048
     Dates: start: 20140101, end: 20141008
  6. PLAVIX [Concomitant]
     Active Substance: CLOPIDOGREL BISULFATE
     Dosage: 75 MG FILM COATED TABLETS IN BLISTER
     Route: 048
  7. TORVAST [Concomitant]
     Active Substance: ATORVASTATIN
     Route: 048

REACTIONS (4)
  - Syncope [Recovering/Resolving]
  - Head injury [Recovering/Resolving]
  - Cephalhaematoma [Recovering/Resolving]
  - Hypoglycaemia [Recovering/Resolving]

NARRATIVE: CASE EVENT DATE: 20141008
